FAERS Safety Report 4320227-7 (Version None)
Quarter: 2004Q1

REPORT INFORMATION
  Report Type: 
  Country: None (occurrence: None)
  Receive Date: 20040317
  Receipt Date: 20040302
  Transmission Date: 20041129
  Serious: No
  Sender: FDA-Public Use
  Company Number: 2004AP00233

PATIENT
  Age: 61 Year
  Sex: Male

DRUGS (17)
  1. IRESSA [Suspect]
     Indication: LUNG ADENOCARCINOMA
     Dosage: 250 MG DAILY PO
     Route: 048
     Dates: start: 20031020, end: 20031110
  2. MAGNESIUM OXIDE [Concomitant]
  3. NOVAMIN [Concomitant]
  4. TEGRETOL [Concomitant]
  5. TRYPTANOL [Concomitant]
  6. SHAKUYAKUKANZOUTOU [Concomitant]
  7. MEXITIL [Concomitant]
  8. LOXONIN [Concomitant]
  9. GASTER [Concomitant]
  10. SELBEX [Concomitant]
  11. KADIAN ^KNOLL^ [Concomitant]
  12. CISPLATIN [Concomitant]
  13. VINORELBINE TARTRATE [Concomitant]
  14. MITOMYCIN-C BULK POWDER [Concomitant]
  15. CARBOPLATIN [Concomitant]
  16. DOCETAXEL [Concomitant]
  17. RADIATION THERAPY [Concomitant]

REACTIONS (1)
  - LOBAR PNEUMONIA [None]
